FAERS Safety Report 24687065 (Version 1)
Quarter: 2024Q4

REPORT INFORMATION
  Report Type: Spontaneous
  Country: US (occurrence: US)
  Receive Date: 20241202
  Receipt Date: 20241202
  Transmission Date: 20250115
  Serious: No
  Sender: PFIZER
  Company Number: US-PFIZER INC-202400311960

PATIENT
  Age: 69 Year
  Sex: Male

DRUGS (2)
  1. FUROSEMIDE [Suspect]
     Active Substance: FUROSEMIDE
     Indication: Cardiac amyloidosis
     Dosage: 20 MG, DAILY
  2. FUROSEMIDE [Suspect]
     Active Substance: FUROSEMIDE
     Indication: Acquired ATTR amyloidosis

REACTIONS (2)
  - Fatigue [Unknown]
  - Off label use [Unknown]
